FAERS Safety Report 12770505 (Version 1)
Quarter: 2016Q3

REPORT INFORMATION
  Report Type: Report from Study
  Country: CA (occurrence: CA)
  Receive Date: 20160922
  Receipt Date: 20160922
  Transmission Date: 20161109
  Serious: Yes (Other)
  Sender: FDA-Public Use
  Company Number: PHHY2016CA128354

PATIENT
  Age: 44 Year
  Sex: Male

DRUGS (2)
  1. MEKINIST [Suspect]
     Active Substance: TRAMETINIB DIMETHYL SULFOXIDE
     Indication: METASTATIC MALIGNANT MELANOMA
     Dosage: UNK
     Route: 048
     Dates: start: 20160624, end: 20160915
  2. TAFINLAR [Suspect]
     Active Substance: DABRAFENIB MESYLATE
     Indication: METASTATIC MALIGNANT MELANOMA
     Dosage: UNK
     Route: 048
     Dates: start: 20160617, end: 20160915

REACTIONS (4)
  - Drug ineffective [Unknown]
  - Metastases to spine [Unknown]
  - Metastases to central nervous system [Unknown]
  - Abasia [Unknown]

NARRATIVE: CASE EVENT DATE: 20160914
